FAERS Safety Report 11754432 (Version 4)
Quarter: 2016Q1

REPORT INFORMATION
  Report Type: Spontaneous
  Country: US (occurrence: US)
  Receive Date: 20151119
  Receipt Date: 20160105
  Transmission Date: 20160525
  Serious: Yes (Hospitalization)
  Sender: FDA-Public Use
  Company Number: US-BEH-2015055875

PATIENT
  Age: 58 Year
  Sex: Female
  Weight: 79 kg

DRUGS (24)
  1. CELEBREX [Concomitant]
     Active Substance: CELECOXIB
  2. SIMVASTATIN. [Concomitant]
     Active Substance: SIMVASTATIN
  3. NORTRIPTYLINE [Concomitant]
     Active Substance: NORTRIPTYLINE
  4. LORAZEPAM. [Concomitant]
     Active Substance: LORAZEPAM
  5. OXYCODONE-ACETAMINOPHEN [Concomitant]
     Active Substance: ACETAMINOPHEN\OXYCODONE HYDROCHLORIDE
  6. ASPIRIN EC [Concomitant]
     Active Substance: ASPIRIN
  7. ROPINIROLE. [Concomitant]
     Active Substance: ROPINIROLE
  8. EPIPEN [Concomitant]
     Active Substance: EPINEPHRINE
  9. AMBIEN [Concomitant]
     Active Substance: ZOLPIDEM TARTRATE
  10. OXYGEN. [Concomitant]
     Active Substance: OXYGEN
  11. DIPHENHYDRAMINE. [Concomitant]
     Active Substance: DIPHENHYDRAMINE
  12. HIZENTRA [Suspect]
     Active Substance: HUMAN IMMUNOGLOBULIN G
     Indication: IMMUNODEFICIENCY COMMON VARIABLE
     Route: 058
     Dates: start: 20151008
  13. TRAZODONE [Concomitant]
     Active Substance: TRAZODONE HYDROCHLORIDE
  14. XOLAIR [Concomitant]
     Active Substance: OMALIZUMAB
  15. ALPRAZOLAM. [Concomitant]
     Active Substance: ALPRAZOLAM
  16. OPANA ER [Concomitant]
     Active Substance: OXYMORPHONE HYDROCHLORIDE
  17. ACETAMINOPHEN. [Concomitant]
     Active Substance: ACETAMINOPHEN
  18. IPRATROPIUM-ALBUTEROL [Concomitant]
     Active Substance: ALBUTEROL\IPRATROPIUM
  19. CYMBALTA [Concomitant]
     Active Substance: DULOXETINE HYDROCHLORIDE
  20. PANTOPRAZOLE [Concomitant]
     Active Substance: PANTOPRAZOLE SODIUM
  21. PROVENTIL HFA [Concomitant]
     Active Substance: ALBUTEROL SULFATE
  22. ADVAIR HFA [Concomitant]
     Active Substance: FLUTICASONE PROPIONATE\SALMETEROL XINAFOATE
  23. FOSAMAX [Concomitant]
     Active Substance: ALENDRONATE SODIUM
  24. SIMVASTATIN. [Concomitant]
     Active Substance: SIMVASTATIN

REACTIONS (3)
  - Nodule [Recovering/Resolving]
  - Asthma [Recovered/Resolved]
  - Asthma [Recovered/Resolved]

NARRATIVE: CASE EVENT DATE: 20151016
